FAERS Safety Report 6193438-6 (Version None)
Quarter: 2009Q2

REPORT INFORMATION
  Report Type: 
  Country: None (occurrence: None)
  Receive Date: 20090518
  Receipt Date: 20081208
  Transmission Date: 20091009
  Serious: No
  Sender: FDA-Public Use
  Company Number: US-ABBOTT-08P-163-0492288-00

PATIENT
  Sex: Female
  Weight: 52.21 kg

DRUGS (11)
  1. AZMACORT [Suspect]
     Indication: ASTHMA
     Dates: start: 20081028
  2. AZMACORT [Suspect]
     Route: 055
     Dates: start: 19880101, end: 20040101
  3. AZMACORT [Suspect]
     Indication: ASTHMA
     Dosage: 2 PUFFS
     Dates: start: 20081028
  4. ADVAIR HFA [Concomitant]
     Indication: ASTHMA
     Route: 055
  5. ACTONEL [Concomitant]
     Indication: OSTEOPOROSIS
  6. ALPHAGEAN [Concomitant]
     Indication: GLAUCOMA
     Route: 047
  7. LUMIGAN EYE DROPS [Concomitant]
     Indication: GLAUCOMA
     Route: 047
  8. EVISTA [Concomitant]
     Indication: OSTEOPOROSIS
  9. FLONASE [Concomitant]
     Indication: RHINITIS ALLERGIC
  10. MAXAIR [Concomitant]
     Indication: ASTHMA
     Dosage: RESCUE INHALER
  11. ALLERGY SHOTS [Concomitant]
     Indication: HOUSE DUST ALLERGY

REACTIONS (3)
  - DRY SKIN [None]
  - PRURITUS [None]
  - RASH [None]
